FAERS Safety Report 8852166 (Version 1)
Quarter: 2012Q4

REPORT INFORMATION
  Report Type: 
  Country: US (occurrence: US)
  Receive Date: 20121022
  Receipt Date: 20121022
  Transmission Date: 20130627
  Serious: Yes (Other)
  Sender: FDA-Public Use
  Company Number: US-PFIZER INC-2012262209

PATIENT
  Age: 63 Year
  Sex: Male
  Weight: 109 kg

DRUGS (4)
  1. LYRICA [Suspect]
     Indication: NEURALGIA
     Dosage: UNK
  2. LYRICA [Suspect]
     Dosage: 75 mg, daily
     Dates: start: 201209
  3. FELDENE [Concomitant]
     Indication: BACK PAIN
     Dosage: UNK
  4. CELEBREX [Concomitant]
     Indication: BACK PAIN
     Dosage: UNK

REACTIONS (1)
  - Dementia [Unknown]
